FAERS Safety Report 7046706-X (Version None)
Quarter: 2010Q4

REPORT INFORMATION
  Report Type: 
  Country: None (occurrence: None)
  Receive Date: 20101015
  Receipt Date: 20101004
  Transmission Date: 20110411
  Serious: Yes (Other)
  Sender: FDA-Public Use
  Company Number: DE-JNJFOC-20101002907

PATIENT
  Age: 15 Year
  Sex: Female

DRUGS (3)
  1. REMICADE [Suspect]
     Indication: CROHN'S DISEASE
     Dosage: 5TH INFUSION
     Route: 042
  2. DECORTIN [Concomitant]
     Indication: PREMEDICATION
  3. FENISTIL [Concomitant]
     Indication: PREMEDICATION

REACTIONS (4)
  - INFUSION RELATED REACTION [None]
  - LIP SWELLING [None]
  - RASH [None]
  - URTICARIA [None]
